FAERS Safety Report 8539949-7 (Version None)
Quarter: 2012Q2

REPORT INFORMATION
  Report Type: 
  Country: None (occurrence: None)
  Receive Date: 20120416
  Receipt Date: 20080115
  Transmission Date: 20120825
  Serious: No
  Sender: FDA-Public Use
  Company Number: PHEH2007US15758

PATIENT
  Sex: Female

DRUGS (3)
  1. DIOVAN [Suspect]
  2. LOVAZA [Concomitant]
  3. PROBIOTICS (MICROORGANISMS W/PROBIOTIC ACTION) (NO INGREDIENTS/SUBSTAN [Concomitant]

REACTIONS (5)
  - RESPIRATORY DISORDER [None]
  - NASOPHARYNGITIS [None]
  - MUSCLE SPASMS [None]
  - MYALGIA [None]
  - DIARRHOEA [None]
